FAERS Safety Report 4340603-6 (Version None)
Quarter: 2004Q2

REPORT INFORMATION
  Report Type: 
  Country: None (occurrence: None)
  Receive Date: 20040414
  Receipt Date: 20040407
  Transmission Date: 20050107
  Serious: Yes (Other)
  Sender: FDA-Public Use
  Company Number: 2004022136

PATIENT
  Age: 43 Year
  Sex: Male
  Weight: 86 kg

DRUGS (3)
  1. ATARAX [Suspect]
     Indication: PREMEDICATION
     Dosage: 100 MG (ONCE), ORAL
     Route: 048
     Dates: start: 20040316, end: 20040316
  2. XYLOCAINE-EPINEPHRINE (LIDOCAINE HYDROCHLORIDE) [Concomitant]
  3. MIDAZOLAM HCL [Concomitant]

REACTIONS (3)
  - BRADYCARDIA [None]
  - PROCEDURAL COMPLICATION [None]
  - SYNCOPE VASOVAGAL [None]
